FAERS Safety Report 8818775 (Version 2)
Quarter: 2012Q4

REPORT INFORMATION
  Report Type: 
  Country: US (occurrence: US)
  Receive Date: 20121001
  Receipt Date: 20121016
  Transmission Date: 20130627
  Serious: Yes (Other)
  Sender: FDA-Public Use
  Company Number: PHHY2012US085005

PATIENT
  Age: 76 Year
  Sex: Female

DRUGS (3)
  1. ASCRIPTIN BUFFERED MAX STRENGTH CAPLETS [Suspect]
     Indication: PAIN
     Route: 048
  2. DARVON [Concomitant]
  3. VINCODIN [Concomitant]

REACTIONS (4)
  - Staphylococcal infection [Recovered/Resolved]
  - Arthritis [Unknown]
  - Arthralgia [Unknown]
  - Incorrect drug administration duration [Unknown]
